FAERS Safety Report 10167646 (Version 7)
Quarter: 2014Q4

REPORT INFORMATION
  Report Type: Report from Study
  Country: CA (occurrence: CA)
  Receive Date: 20140512
  Receipt Date: 20141223
  Transmission Date: 20150528
  Serious: Yes (Other)
  Sender: FDA-Public Use
  Company Number: PHHY2012CA078099

PATIENT
  Age: 48 Year
  Sex: Male

DRUGS (5)
  1. GLEEVEC [Suspect]
     Active Substance: IMATINIB MESYLATE
     Indication: GASTROINTESTINAL STROMAL TUMOUR
     Dosage: 400 MG, QD
     Route: 048
     Dates: start: 200804, end: 2010
  2. GLEEVEC [Suspect]
     Active Substance: IMATINIB MESYLATE
     Dosage: 400 MG, QD
     Route: 048
     Dates: start: 201209, end: 20140404
  3. GLEEVEC [Suspect]
     Active Substance: IMATINIB MESYLATE
     Dosage: 400 MG, QD
     Route: 048
     Dates: start: 200804, end: 20141202
  4. OMEPRAZOLE. [Concomitant]
     Active Substance: OMEPRAZOLE
     Indication: GASTRIC PH DECREASED
     Route: 065
  5. GLEEVEC [Suspect]
     Active Substance: IMATINIB MESYLATE
     Dosage: 400 MG, QD
     Route: 048
     Dates: end: 201407

REACTIONS (13)
  - Abdominal pain [Unknown]
  - Gastric pH decreased [Unknown]
  - Gastrointestinal stromal tumour [Unknown]
  - Sunburn [Unknown]
  - Skin burning sensation [Unknown]
  - Neoplasm [Unknown]
  - Muscle spasms [Recovering/Resolving]
  - Fistula [Unknown]
  - Neoplasm recurrence [Unknown]
  - Inflammation [Recovering/Resolving]
  - Intestinal perforation [Recovering/Resolving]
  - Metastasis [Unknown]
  - Metastases to liver [Unknown]

NARRATIVE: CASE EVENT DATE: 201312
